FAERS Safety Report 9713440 (Version 1)
Quarter: 2013Q4

REPORT INFORMATION
  Report Type: Spontaneous
  Country: US (occurrence: US)
  Receive Date: 20131126
  Receipt Date: 20131126
  Transmission Date: 20140711
  Serious: No
  Sender: FDA-Public Use
  Company Number: US-ELI_LILLY_AND_COMPANY-US201311006636

PATIENT
  Sex: Male

DRUGS (2)
  1. CIALIS [Suspect]
     Indication: ERECTILE DYSFUNCTION
     Dosage: 5 MG, QD
     Route: 065
     Dates: start: 20131014
  2. CIALIS [Suspect]
     Dosage: 5 MG, QD
     Route: 065

REACTIONS (5)
  - Visual impairment [Unknown]
  - Cough [Unknown]
  - Inappropriate schedule of drug administration [Unknown]
  - Drug ineffective [Unknown]
  - Nasal congestion [Unknown]
